FAERS Safety Report 21796443 (Version 1)
Quarter: 2022Q4

REPORT INFORMATION
  Report Type: Report from Study
  Country: US (occurrence: US)
  Receive Date: 20221229
  Receipt Date: 20221229
  Transmission Date: 20230113
  Serious: Yes (Other)
  Sender: FDA-Public Use
  Company Number: US-ABBVIE-4251403

PATIENT
  Age: 66 Year
  Sex: Male

DRUGS (1)
  1. LUPRON [Suspect]
     Active Substance: LEUPROLIDE ACETATE
     Indication: Product used for unknown indication
     Dates: start: 20220531

REACTIONS (5)
  - Road traffic accident [Unknown]
  - Fatigue [Unknown]
  - Hot flush [Unknown]
  - Spinal stenosis [Unknown]
  - Limb asymmetry [Unknown]

NARRATIVE: CASE EVENT DATE: 20220630
